FAERS Safety Report 16002413 (Version 2)
Quarter: 2019Q2

REPORT INFORMATION
  Report Type: Report from Study
  Country: None (occurrence: NL)
  Receive Date: 20190225
  Receipt Date: 20190625
  Transmission Date: 20190711
  Serious: Yes (Other)
  Sender: FDA-Public Use
  Company Number: NL-ABBVIE-19S-114-2679242-00

PATIENT
  Sex: Female
  Weight: 42 kg

DRUGS (2)
  1. DUODOPA [Suspect]
     Active Substance: CARBIDOPA\LEVODOPA
     Indication: PARKINSON^S DISEASE
     Dosage: MD: 4.0, CD: 2.5, ED: 1.0, CND: 1.7, END: 1.0
     Route: 050
     Dates: start: 20180108
  2. DUODOPA [Suspect]
     Active Substance: CARBIDOPA\LEVODOPA
     Dosage: MORNING DOSE: 2.8 CONTINUOUS DOSE: 3.0 NIGHT DOSE: 1.2
     Route: 050

REACTIONS (3)
  - Tension [Not Recovered/Not Resolved]
  - Basal cell carcinoma [Recovered/Resolved]
  - Urinary tract infection [Unknown]
